FAERS Safety Report 9977989 (Version 2)
Quarter: 2014Q1

REPORT INFORMATION
  Report Type: Report from Study
  Country: US (occurrence: US)
  Receive Date: 20140306
  Receipt Date: 20140306
  Transmission Date: 20141002
  Serious: No
  Sender: FDA-Public Use
  Company Number: US-ABBVIE-13P-163-1045836-00

PATIENT
  Age: 66 Year
  Sex: Female

DRUGS (7)
  1. HUMIRA [Suspect]
     Indication: CROHN^S DISEASE
     Route: 058
     Dates: start: 20130126, end: 20130126
  2. HUMIRA [Suspect]
     Route: 058
     Dates: start: 20130209, end: 20130209
  3. HUMIRA [Suspect]
     Route: 058
     Dates: start: 20130223
  4. OMEPRAZOLE [Concomitant]
     Indication: GASTROOESOPHAGEAL REFLUX DISEASE
     Dosage: UNKNOWN
  5. PENTASA [Concomitant]
     Indication: CROHN^S DISEASE
  6. PREVALITE [Concomitant]
     Indication: BLOOD CHOLESTEROL INCREASED
     Dosage: UNKNOWN
  7. WARFARIN [Concomitant]
     Indication: THROMBOSIS
     Dosage: UNKNOWN DOSE

REACTIONS (4)
  - Stress fracture [Not Recovered/Not Resolved]
  - Injection site pain [Recovering/Resolving]
  - Injection site pain [Not Recovered/Not Resolved]
  - Abdominal pain upper [Recovering/Resolving]
